FAERS Safety Report 5272663-2 (Version None)
Quarter: 2007Q1

REPORT INFORMATION
  Report Type: 
  Country: None (occurrence: None)
  Receive Date: 20070322
  Receipt Date: 20070213
  Transmission Date: 20070707
  Serious: Yes (Death, Hospitalization)
  Sender: FDA-Public Use
  Company Number: HQWYE570113FEB07

PATIENT
  Sex: Female
  Weight: 70 kg

DRUGS (7)
  1. ENBREL [Suspect]
     Indication: RHEUMATOID ARTHRITIS
     Route: 058
     Dates: start: 20061026, end: 20070201
  2. MUCOSTA [Concomitant]
     Route: 048
     Dates: start: 20050930
  3. VOLTAREN [Concomitant]
     Route: 054
     Dates: start: 20050930
  4. PREDONINE [Concomitant]
     Route: 048
     Dates: start: 20050930
  5. ISCOTIN [Concomitant]
     Route: 048
     Dates: start: 20061025
  6. LOXONIN [Concomitant]
     Route: 048
     Dates: start: 20050930
  7. ZANTAC [Concomitant]
     Route: 048
     Dates: start: 20050930

REACTIONS (2)
  - CONDITION AGGRAVATED [None]
  - INTERSTITIAL LUNG DISEASE [None]
